FAERS Safety Report 4979155-6 (Version None)
Quarter: 2006Q2

REPORT INFORMATION
  Report Type: 
  Country: None (occurrence: None)
  Receive Date: 20060421
  Receipt Date: 20060413
  Transmission Date: 20061013
  Serious: Yes (Other)
  Sender: FDA-Public Use
  Company Number: US-JNJFOC-20060403421

PATIENT
  Sex: Female
  Weight: 72.58 kg

DRUGS (1)
  1. ORTHO TRI-CYCLEN LO [Suspect]
     Route: 048

REACTIONS (1)
  - PLEURISY [None]
